FAERS Safety Report 15167846 (Version 1)
Quarter: 2018Q3

REPORT INFORMATION
  Report Type: Spontaneous
  Country: SE (occurrence: SE)
  Receive Date: 20180719
  Receipt Date: 20180719
  Transmission Date: 20181010
  Serious: Yes (Other)
  Sender: FDA-Public Use
  Company Number: SE-MYLANLABS-2018M1052295

PATIENT
  Age: 85 Year
  Sex: Female

DRUGS (9)
  1. HYDROCHLOROTHIAZIDE. [Interacting]
     Active Substance: HYDROCHLOROTHIAZIDE
     Indication: HYPERTENSION
     Dosage: 12.5 MG, UNK
     Route: 048
  2. ENALAPRIL [Suspect]
     Active Substance: ENALAPRIL
     Indication: HYPERTENSION
     Dosage: 20 MG, UNK
     Route: 048
  3. TRIMETAZIDINE [Concomitant]
     Active Substance: TRIMETAZIDINE
     Indication: PRODUCT USED FOR UNKNOWN INDICATION
     Dosage: UNK
  4. SIMVASTATIN. [Concomitant]
     Active Substance: SIMVASTATIN
     Indication: PRODUCT USED FOR UNKNOWN INDICATION
     Dosage: UNK
  5. ALPRAZOLAM. [Concomitant]
     Active Substance: ALPRAZOLAM
     Indication: PRODUCT USED FOR UNKNOWN INDICATION
     Dosage: UNK
  6. METFORMIN [Concomitant]
     Active Substance: METFORMIN HYDROCHLORIDE
     Indication: PRODUCT USED FOR UNKNOWN INDICATION
     Dosage: UNK
  7. OMEPRAZOLE. [Concomitant]
     Active Substance: OMEPRAZOLE
     Indication: PRODUCT USED FOR UNKNOWN INDICATION
     Dosage: UNK
  8. IPRATROPIUM [Concomitant]
     Active Substance: IPRATROPIUM
     Indication: PRODUCT USED FOR UNKNOWN INDICATION
     Dosage: UNK
  9. CIPROFLOXACIN. [Interacting]
     Active Substance: CIPROFLOXACIN
     Indication: BRONCHITIS
     Dosage: 1.0 G, UNK
     Route: 048

REACTIONS (8)
  - Nausea [Recovered/Resolved]
  - Drug interaction [Recovered/Resolved]
  - Tachypnoea [Unknown]
  - Tachycardia [Recovered/Resolved]
  - Hypotension [Recovered/Resolved]
  - Acute kidney injury [Recovered/Resolved]
  - Hypoxia [Recovered/Resolved]
  - Vomiting [Recovered/Resolved]
